FAERS Safety Report 19256938 (Version 3)
Quarter: 2021Q3

REPORT INFORMATION
  Report Type: Spontaneous
  Country: ES (occurrence: ES)
  Receive Date: 20210514
  Receipt Date: 20210923
  Transmission Date: 20211014
  Serious: Yes (Other)
  Sender: FDA-Public Use
  Company Number: ES-AUROBINDO-AUR-APL-2021-019990

PATIENT
  Age: 9 Decade
  Sex: Male
  Weight: 80 kg

DRUGS (7)
  1. DARATUMUMAB [Suspect]
     Active Substance: DARATUMUMAB
     Dosage: 8.56 MILLIGRAM/KILOGRAM (DARATUMUMAB ADMINISTRATED AT 8.556 MG/KG IN WEEK 1 OF DVMP TREATMENT IN 1ST
     Route: 058
  2. MELPHALAN. [Suspect]
     Active Substance: MELPHALAN
     Indication: PLASMA CELL MYELOMA
     Dosage: UNK
     Route: 065
  3. DARATUMUMAB [Suspect]
     Active Substance: DARATUMUMAB
     Indication: PLASMA CELL MYELOMA
     Dosage: 22.5 MILLIGRAM/KILOGRAM (DARATUMUMAB ADMINISTRATED AT 22.5 MG/KG IN WEEK 34, 37, 40, 43 46 AND 49 OF
     Route: 058
  4. DARATUMUMAB [Suspect]
     Active Substance: DARATUMUMAB
     Dosage: 25.35 MILLIGRAM/KILOGRAM (WEEK 52 ? 1 (25.352 MG/KG), WEEK 55 ? 1 (25.352 MG/KG), WEEK 58 ? 1 (25.35
     Route: 058
  5. VELCADE [Suspect]
     Active Substance: BORTEZOMIB
     Indication: PLASMA CELL MYELOMA
     Dosage: UNK
     Route: 065
  6. DARATUMUMAB [Suspect]
     Active Substance: DARATUMUMAB
     Dosage: 15.56 MILLIGRAM/KILOGRAM (DARATUMUMAB ADMINISTRATED AT 22.5 MG/KG IN WEEK 34, 37, 40, 43 46 AND 49 O
     Route: 058
  7. PREDNISOLONE. [Suspect]
     Active Substance: PREDNISOLONE
     Indication: PLASMA CELL MYELOMA
     Dosage: UNK
     Route: 065

REACTIONS (4)
  - Product use issue [Unknown]
  - Off label use [Unknown]
  - Weight decreased [Unknown]
  - Renal failure [Unknown]
